FAERS Safety Report 6785718-8 (Version None)
Quarter: 2010Q2

REPORT INFORMATION
  Report Type: 
  Country: None (occurrence: None)
  Receive Date: 20100623
  Receipt Date: 20100610
  Transmission Date: 20101027
  Serious: No
  Sender: FDA-Public Use
  Company Number: PHHY2010US14616

PATIENT
  Sex: Female
  Weight: 112.29 kg

DRUGS (1)
  1. TASIGNA [Suspect]
     Indication: RECTAL CANCER
     Dosage: 200 MG, 2 TAB BID
     Route: 048
     Dates: start: 20091218

REACTIONS (1)
  - DRUG ADMINISTRATION ERROR [None]
